FAERS Safety Report 5758915-8 (Version None)
Quarter: 2008Q2

REPORT INFORMATION
  Report Type: 
  Country: None (occurrence: None)
  Receive Date: 20080602
  Receipt Date: 20080515
  Transmission Date: 20081010
  Serious: Yes (Hospitalization)
  Sender: FDA-Public Use
  Company Number: 2008VX001195

PATIENT
  Age: 77 Year
  Sex: Female
  Weight: 50.1 kg

DRUGS (5)
  1. PETGOLIDER (PERGOLIDE MESILATE) [Suspect]
     Indication: PARKINSON'S DISEASE
     Dosage: 50 UG; QD; 150 UG; QD; 200 UG; QD
     Dates: start: 20011201
  2. PETGOLIDER (PERGOLIDE MESILATE) [Suspect]
     Indication: PARKINSON'S DISEASE
     Dosage: 50 UG; QD; 150 UG; QD; 200 UG; QD
     Dates: start: 20020901
  3. PETGOLIDER (PERGOLIDE MESILATE) [Suspect]
     Indication: PARKINSON'S DISEASE
     Dosage: 50 UG; QD; 150 UG; QD; 200 UG; QD
     Dates: start: 20030101
  4. LEVODOPA [Concomitant]
  5. SELEGILINE HCL [Concomitant]

REACTIONS (8)
  - DRUG RESISTANCE [None]
  - FALL [None]
  - GAIT DISTURBANCE [None]
  - GENERALISED OEDEMA [None]
  - HYPOXIA [None]
  - INFLAMMATION [None]
  - OEDEMA PERIPHERAL [None]
  - PLEURAL EFFUSION [None]
